FAERS Safety Report 21775464 (Version 2)
Quarter: 2023Q1

REPORT INFORMATION
  Report Type: Spontaneous
  Country: US (occurrence: None)
  Receive Date: 20221226
  Receipt Date: 20230109
  Transmission Date: 20230417
  Serious: No
  Sender: FDA-Public Use
  Company Number: 2022A402395

PATIENT
  Age: 744 Month
  Sex: Female
  Weight: 63.5 kg

DRUGS (3)
  1. LYNPARZA [Suspect]
     Active Substance: OLAPARIB
     Indication: Ovarian cancer
     Route: 048
     Dates: start: 20221102, end: 20221114
  2. LYNPARZA [Suspect]
     Active Substance: OLAPARIB
     Indication: Ovarian cancer
     Route: 048
     Dates: start: 20221128
  3. MVASI [Suspect]
     Active Substance: BEVACIZUMAB-AWWB

REACTIONS (5)
  - Glomerular filtration rate decreased [Unknown]
  - Renal impairment [Unknown]
  - Blood creatinine increased [Unknown]
  - Nausea [Not Recovered/Not Resolved]
  - Decreased appetite [Not Recovered/Not Resolved]

NARRATIVE: CASE EVENT DATE: 20221101
